FAERS Safety Report 13385264 (Version 2)
Quarter: 2017Q2

REPORT INFORMATION
  Report Type: Report from Study
  Country: None (occurrence: US)
  Receive Date: 20170329
  Receipt Date: 20170419
  Transmission Date: 20170830
  Serious: Yes (Hospitalization)
  Sender: FDA-Public Use
  Company Number: US-ABBVIE-17K-163-1923360-00

PATIENT
  Age: 46 Year
  Sex: Female
  Weight: 42.68 kg

DRUGS (6)
  1. APRISO [Concomitant]
     Active Substance: MESALAMINE
     Indication: COLITIS ULCERATIVE
  2. HUMIRA [Suspect]
     Active Substance: ADALIMUMAB
     Route: 058
     Dates: start: 20161104, end: 20161104
  3. HUMIRA [Suspect]
     Active Substance: ADALIMUMAB
     Route: 058
     Dates: start: 20161124, end: 201702
  4. HUMIRA [Suspect]
     Active Substance: ADALIMUMAB
     Route: 058
     Dates: start: 201702, end: 201703
  5. HUMIRA [Suspect]
     Active Substance: ADALIMUMAB
     Indication: COLITIS ULCERATIVE
     Route: 058
     Dates: start: 20161031, end: 20161031
  6. PREDNISONE. [Concomitant]
     Active Substance: PREDNISONE
     Indication: COLITIS ULCERATIVE

REACTIONS (13)
  - Protein total decreased [Recovering/Resolving]
  - Drug ineffective [Not Recovered/Not Resolved]
  - Gastroenteritis viral [Recovered/Resolved]
  - Colitis ulcerative [Unknown]
  - Pyrexia [Recovered/Resolved]
  - Pharyngitis streptococcal [Recovered/Resolved]
  - Swelling face [Not Recovered/Not Resolved]
  - Dehydration [Recovered/Resolved]
  - Herpes zoster [Recovered/Resolved]
  - Weight decreased [Recovering/Resolving]
  - Malnutrition [Recovering/Resolving]
  - Sinusitis [Recovered/Resolved]
  - Infection [Recovering/Resolving]

NARRATIVE: CASE EVENT DATE: 201611
